FAERS Safety Report 4725013-1 (Version None)
Quarter: 2005Q3

REPORT INFORMATION
  Report Type: 
  Country: None (occurrence: None)
  Receive Date: 20050722
  Receipt Date: 20050713
  Transmission Date: 20060218
  Serious: Yes (Other)
  Sender: FDA-Public Use
  Company Number: 2005071890

PATIENT
  Sex: Male

DRUGS (1)
  1. ACCUPRIL [Suspect]
     Indication: HYPERTENSION
     Dosage: 2 TABLETS (DAILY),ORAL
     Route: 048

REACTIONS (2)
  - HYPOTHYROIDISM [None]
  - NEOPLASM MALIGNANT [None]
